FAERS Safety Report 14957319 (Version 2)
Quarter: 2018Q2

REPORT INFORMATION
  Report Type: Spontaneous
  Country: US (occurrence: US)
  Receive Date: 20180531
  Receipt Date: 20180611
  Transmission Date: 20180711
  Serious: Yes (Hospitalization)
  Sender: FDA-Public Use
  Company Number: US-TEVA-2018-US-897215

PATIENT
  Age: 65 Year
  Sex: Male
  Weight: 89 kg

DRUGS (26)
  1. METOPROLOL. [Suspect]
     Active Substance: METOPROLOL
     Indication: ANGINA PECTORIS
     Route: 065
     Dates: start: 20180323, end: 20180323
  2. VITAMIN D3 [Concomitant]
     Active Substance: CHOLECALCIFEROL
  3. ONDANSETRON [Concomitant]
     Active Substance: ONDANSETRON
  4. VITAMIN C [Concomitant]
     Active Substance: ASCORBIC ACID
  5. MELATONIN [Concomitant]
     Active Substance: MELATONIN
  6. COREG [Concomitant]
     Active Substance: CARVEDILOL
     Dates: start: 20180323, end: 20180323
  7. MORPHINE [Concomitant]
     Active Substance: MORPHINE
  8. RIVAROXABAN [Concomitant]
     Active Substance: RIVAROXABAN
  9. NEURONTIN [Concomitant]
     Active Substance: GABAPENTIN
  10. GLUCOSAMINE [Concomitant]
     Active Substance: GLUCOSAMINE
  11. FERROUS SULFATE. [Concomitant]
     Active Substance: FERROUS SULFATE
  12. NIROSTAT [Concomitant]
  13. HUMALOG [Concomitant]
     Active Substance: INSULIN LISPRO
  14. PRILOSEC [Concomitant]
     Active Substance: OMEPRAZOLE MAGNESIUM
  15. LASIX [Concomitant]
     Active Substance: FUROSEMIDE
  16. INSULIN [Concomitant]
     Active Substance: INSULIN NOS
  17. SYNTHROID [Concomitant]
     Active Substance: LEVOTHYROXINE SODIUM
  18. ATIVAN [Concomitant]
     Active Substance: LORAZEPAM
  19. DELTASONE [Concomitant]
     Active Substance: PREDNISONE
  20. PROBIOTIC [Concomitant]
     Active Substance: PROBIOTICS NOS
  21. ASPIRIN. [Concomitant]
     Active Substance: ASPIRIN
  22. INSULIN GLARGINE [Concomitant]
     Active Substance: INSULIN GLARGINE
  23. OMEGA-3 FATTY ACIDS [Concomitant]
     Active Substance: OMEGA-3 FATTY ACIDS
  24. PRED FORTE [Concomitant]
     Active Substance: PREDNISOLONE ACETATE
  25. CRESTOR [Concomitant]
     Active Substance: ROSUVASTATIN CALCIUM
  26. UBIQUINONE [Concomitant]
     Active Substance: UBIDECARENONE

REACTIONS (7)
  - Nausea [Unknown]
  - Flushing [Unknown]
  - Hyperhidrosis [Unknown]
  - Chest pain [Recovered/Resolved]
  - Limb injury [Unknown]
  - Pain [Recovered/Resolved]
  - Haemorrhage [Unknown]

NARRATIVE: CASE EVENT DATE: 20180324
